FAERS Safety Report 5242202-0 (Version None)
Quarter: 2007Q1

REPORT INFORMATION
  Report Type: 
  Country: None (occurrence: None)
  Receive Date: 20070213
  Receipt Date: 20070205
  Transmission Date: 20070707
  Serious: Yes (Life-Threatening, Hospitalization)
  Sender: FDA-Public Use
  Company Number: CHNY2007DE00804

PATIENT
  Age: 43 Year
  Sex: Female
  Weight: 53 kg

DRUGS (4)
  1. CLEMASTINE FUMARATE [Suspect]
     Dosage: 2 MG, ONCE/SINGLE, INTRAVENOUS
     Route: 042
     Dates: start: 20061201, end: 20061201
  2. MABTHERA(RITUXIMAB) [Suspect]
     Indication: ANAEMIA HAEMOLYTIC AUTOIMMUNE
     Dosage: 500 MG, ONCE/SINGLE, INTRAVENOUS
     Route: 042
     Dates: start: 20061201, end: 20061201
  3. SOLU-DECORTIN-H (PREDNISOLONE SODIUM SUCCINATE) [Concomitant]
  4. FOSAMAX [Concomitant]

REACTIONS (5)
  - ANGIOPATHY [None]
  - AREFLEXIA [None]
  - CEREBRAL HYPOPERFUSION [None]
  - COMA [None]
  - SOMNOLENCE [None]
